FAERS Safety Report 7953125-8 (Version None)
Quarter: 2011Q4

REPORT INFORMATION
  Report Type: 
  Country: None (occurrence: None)
  Receive Date: 20111201
  Receipt Date: 20111122
  Transmission Date: 20120403
  Serious: Yes (Hospitalization)
  Sender: FDA-Public Use
  Company Number: FR-ASTRAZENECA-2011SE71259

PATIENT
  Age: 59 Year
  Sex: Female

DRUGS (10)
  1. DIPRIVAN [Suspect]
     Indication: ANAESTHESIA
     Route: 042
     Dates: start: 20111020, end: 20111020
  2. SUFENTANYL [Concomitant]
     Indication: ANALGESIC THERAPY
     Route: 042
     Dates: start: 20111020, end: 20111020
  3. MIDAZOLAM [Concomitant]
     Indication: ANAESTHESIA
     Route: 042
     Dates: start: 20111020, end: 20111020
  4. CELOCURINE [Suspect]
     Indication: ENDOTRACHEAL INTUBATION
     Route: 042
     Dates: start: 20111020, end: 20111020
  5. CLIMAXOL [Concomitant]
     Indication: PERIPHERAL VASCULAR DISORDER
     Route: 048
  6. ZOLPIDEM [Concomitant]
     Route: 048
  7. LUMIGAN [Concomitant]
     Indication: GLAUCOMA
     Dosage: 0.3 MG/ML; 1 GTT DAILY
     Route: 047
  8. MIDAZOLAM HCL [Concomitant]
     Route: 048
     Dates: start: 20111020
  9. CEFAZOLIN [Suspect]
     Indication: ANTIBIOTIC THERAPY
     Route: 042
     Dates: start: 20111020, end: 20111020
  10. OROCAL [Concomitant]
     Indication: OSTEOPENIA
     Route: 048

REACTIONS (3)
  - ANAPHYLACTIC SHOCK [None]
  - GENERALISED ERYTHEMA [None]
  - TACHYCARDIA [None]
